FAERS Safety Report 5076358-X (Version None)
Quarter: 2006Q3

REPORT INFORMATION
  Report Type: 
  Country: None (occurrence: None)
  Receive Date: 20060807
  Receipt Date: 20060723
  Transmission Date: 20061208
  Serious: Yes (Other)
  Sender: FDA-Public Use
  Company Number: CHNY2006DE02189

PATIENT
  Sex: Female

DRUGS (1)
  1. SCOPODERM TTS (NCH) (HYOSCINE HYDROBROMIDE) TRANS-THERAPEUTIC SYSTEM [Suspect]
     Indication: MOTION SICKNESS
     Dosage: TRANSDERMAL
     Route: 062
     Dates: start: 20060701, end: 20060701

REACTIONS (14)
  - ASTHENIA [None]
  - DAYDREAMING [None]
  - DEPRESSED LEVEL OF CONSCIOUSNESS [None]
  - DIZZINESS [None]
  - DRUG TOXICITY [None]
  - FATIGUE [None]
  - HYPOAESTHESIA [None]
  - HYPOTONIA [None]
  - MYDRIASIS [None]
  - NAUSEA [None]
  - OVERDOSE [None]
  - RASH GENERALISED [None]
  - READING DISORDER [None]
  - VISUAL DISTURBANCE [None]
